FAERS Safety Report 11850050 (Version 1)
Quarter: 2015Q4

REPORT INFORMATION
  Report Type: Spontaneous
  Country: US (occurrence: US)
  Receive Date: 20151218
  Receipt Date: 20151218
  Transmission Date: 20160305
  Serious: No
  Sender: FDA-Public Use
  Company Number: US-JNJFOC-20151124432

PATIENT
  Sex: Female

DRUGS (2)
  1. LEUPROLIDE ACETATE. [Suspect]
     Active Substance: LEUPROLIDE ACETATE
     Indication: ENDOMETRIOSIS
     Route: 065
  2. NORETHISTERONE [Suspect]
     Active Substance: NORETHINDRONE
     Indication: ENDOMETRIOSIS
     Dosage: 24 WEEK THEN ANOTHER 28 WEEK
     Route: 065

REACTIONS (3)
  - Bone density decreased [Unknown]
  - Product use issue [Unknown]
  - Off label use [Unknown]
